FAERS Safety Report 8252176-6 (Version None)
Quarter: 2012Q2

REPORT INFORMATION
  Report Type: 
  Country: None (occurrence: None)
  Receive Date: 20120402
  Receipt Date: 20120322
  Transmission Date: 20120825
  Serious: Yes (Hospitalization, Other)
  Sender: FDA-Public Use
  Company Number: US-ELI_LILLY_AND_COMPANY-US201112001407

PATIENT
  Sex: Female

DRUGS (3)
  1. FORTEO [Suspect]
     Indication: OSTEOPOROSIS
     Dosage: 20 UG, QD
     Dates: start: 20111122
  2. FORTEO [Suspect]
     Dosage: 20 UG, QD
     Dates: end: 20120201
  3. COUMADIN [Concomitant]
     Indication: COAGULOPATHY
     Dosage: UNK
     Dates: end: 20120201

REACTIONS (6)
  - KNEE ARTHROPLASTY [None]
  - ARTHRALGIA [None]
  - GAIT DISTURBANCE [None]
  - SPINAL FRACTURE [None]
  - PAIN IN EXTREMITY [None]
  - MUSCLE SPASMS [None]
